FAERS Safety Report 23844121 (Version 3)
Quarter: 2024Q3

REPORT INFORMATION
  Report Type: Report from Study
  Country: US (occurrence: US)
  Receive Date: 20240510
  Receipt Date: 20240726
  Transmission Date: 20241016
  Serious: No
  Sender: ALEXION PHARMACEUTICALS
  Company Number: US-AstraZeneca-CH-00621020A

PATIENT
  Age: 61 Year
  Sex: Female

DRUGS (3)
  1. SOLIRIS [Suspect]
     Active Substance: ECULIZUMAB
     Indication: Neuromyelitis optica spectrum disorder
     Dosage: UNK
     Route: 042
     Dates: start: 20200929
  2. PREDNISONE [Concomitant]
     Active Substance: PREDNISONE
     Indication: Neuromyelitis optica spectrum disorder
     Dosage: UNK
     Route: 065
  3. PENICILLIN [Concomitant]
     Active Substance: PENICILLIN
     Indication: Prophylaxis
     Dosage: UNK
     Route: 065

REACTIONS (2)
  - Rash macular [Recovering/Resolving]
  - Rash pruritic [Recovering/Resolving]

NARRATIVE: CASE EVENT DATE: 20240503
